FAERS Safety Report 13792596 (Version 1)
Quarter: 2017Q3

REPORT INFORMATION
  Report Type: Report from Study
  Country: JP (occurrence: JP)
  Receive Date: 20170725
  Receipt Date: 20170725
  Transmission Date: 20171127
  Serious: Yes (Death, Other)
  Sender: FDA-Public Use
  Company Number: JP-ROCHE-1966296

PATIENT

DRUGS (3)
  1. CARBOPLATIN. [Suspect]
     Active Substance: CARBOPLATIN
     Indication: NON-SMALL CELL LUNG CANCER
     Dosage: (AREA UNDER THE CONCENTRATIONTIME CURVE (AUC) 6 MG/MLXMIN) ?THEN 3 WEEKLY
     Route: 065
  2. PACLITAXEL. [Suspect]
     Active Substance: PACLITAXEL
     Indication: NON-SMALL CELL LUNG CANCER
     Dosage: AND THEN 3 WEEKLY
     Route: 065
  3. BEVACIZUMAB. [Suspect]
     Active Substance: BEVACIZUMAB
     Indication: NON-SMALL CELL LUNG CANCER
     Dosage: AND THEN 3 WEEKLY
     Route: 065

REACTIONS (14)
  - Sudden death [Fatal]
  - Thrombocytopenia [Unknown]
  - Vomiting [Unknown]
  - Neuropathy peripheral [Unknown]
  - Constipation [Unknown]
  - Febrile neutropenia [Unknown]
  - Hypertension [Unknown]
  - Leukopenia [Unknown]
  - Decreased appetite [Unknown]
  - Fatigue [Unknown]
  - Neutropenia [Unknown]
  - Anaemia [Unknown]
  - Nausea [Unknown]
  - Pneumonitis [Unknown]
